FAERS Safety Report 20368042 (Version 3)
Quarter: 2024Q1

REPORT INFORMATION
  Report Type: Other
  Country: FR (occurrence: None)
  Receive Date: 20220124
  Receipt Date: 20240304
  Transmission Date: 20240409
  Serious: Yes (Death, Other)
  Sender: FDA-Public Use
  Company Number: FR-ROCHE-3002161

PATIENT

DRUGS (3)
  1. RITUXIMAB [Suspect]
     Active Substance: RITUXIMAB
     Indication: Chronic lymphocytic leukaemia
     Route: 065
  2. FLUDARABINE [Suspect]
     Active Substance: FLUDARABINE PHOSPHATE
     Indication: Chronic lymphocytic leukaemia
     Route: 065
  3. CYCLOPHOSPHAMIDE [Suspect]
     Active Substance: CYCLOPHOSPHAMIDE
     Indication: Chronic lymphocytic leukaemia
     Route: 065

REACTIONS (17)
  - Septic shock [Fatal]
  - Acute myeloid leukaemia [Fatal]
  - Neutropenia [Unknown]
  - Infusion related reaction [Unknown]
  - Tumour lysis syndrome [Unknown]
  - Anaemia [Unknown]
  - Thrombocytopenia [Unknown]
  - Autoimmune haemolytic anaemia [Unknown]
  - COVID-19 pneumonia [Unknown]
  - Pyrexia [Unknown]
  - Pneumonia [Unknown]
  - Gastrointestinal toxicity [Unknown]
  - Confusional state [Unknown]
  - Chest pain [Unknown]
  - Myelodysplastic syndrome [Unknown]
  - COVID-19 [Unknown]
  - Febrile neutropenia [Unknown]
